FAERS Safety Report 20634400 (Version 1)
Quarter: 2022Q1

REPORT INFORMATION
  Report Type: Spontaneous
  Country: US (occurrence: US)
  Receive Date: 20220325
  Receipt Date: 20220325
  Transmission Date: 20220423
  Serious: No
  Sender: FDA-Public Use
  Company Number: US-JNJFOC-20220340276

PATIENT
  Sex: Female

DRUGS (1)
  1. INVEGA [Suspect]
     Active Substance: PALIPERIDONE
     Indication: Schizophrenia
     Route: 048

REACTIONS (8)
  - Nightmare [Unknown]
  - Myalgia [Unknown]
  - Thinking abnormal [Unknown]
  - Musculoskeletal stiffness [Unknown]
  - Taste disorder [Unknown]
  - Parosmia [Unknown]
  - Muscle contracture [Unknown]
  - Galactorrhoea [Unknown]
